FAERS Safety Report 9442364 (Version 1)
Quarter: 2013Q3

REPORT INFORMATION
  Report Type: Spontaneous
  Country: US (occurrence: US)
  Receive Date: 20130806
  Receipt Date: 20130806
  Transmission Date: 20140515
  Serious: No
  Sender: FDA-Public Use
  Company Number: US-GLAXOSMITHKLINE-A1012053A

PATIENT
  Age: 53 Year
  Sex: Female
  Weight: 85.5 kg

DRUGS (5)
  1. ADVAIR [Suspect]
     Indication: ASTHMA
     Dosage: 2PUFF TWICE PER DAY
     Route: 055
     Dates: start: 20130208, end: 20130211
  2. ACTONEL [Concomitant]
  3. SIMVASTATIN [Concomitant]
  4. PRILOSEC [Concomitant]
  5. ALBUTEROL NEBULIZER [Concomitant]

REACTIONS (2)
  - Headache [Recovered/Resolved]
  - Chest discomfort [Recovered/Resolved]
